FAERS Safety Report 7349023-3 (Version None)
Quarter: 2011Q1

REPORT INFORMATION
  Report Type: 
  Country: None (occurrence: None)
  Receive Date: 20110314
  Receipt Date: 20110307
  Transmission Date: 20110831
  Serious: Yes (Other)
  Sender: FDA-Public Use
  Company Number: CH-US-EMD SERONO, INC.-7045029

PATIENT
  Sex: Female
  Weight: 77 kg

DRUGS (7)
  1. REBIF [Suspect]
     Indication: MULTIPLE SCLEROSIS
     Route: 058
     Dates: start: 20080501
  2. SURMONTIL [Concomitant]
     Indication: SLEEP DISORDER
     Dosage: 1-2 TABLET A DAY
     Route: 048
     Dates: start: 20110304
  3. IRFEN [Concomitant]
     Indication: PAIN
     Route: 048
     Dates: start: 20030101
  4. MODASOMIL [Concomitant]
     Indication: SLEEP DISORDER
     Route: 048
     Dates: start: 20101201, end: 20110101
  5. DAFALGAN [Concomitant]
     Indication: PROPHYLAXIS
     Dosage: 1-3 TABLET A DAY
     Route: 048
     Dates: start: 20080501
  6. STILNOX [Concomitant]
     Indication: SLEEP DISORDER
     Dosage: 1-3 TABLET A DAY
     Route: 048
     Dates: start: 20060101, end: 20110304
  7. PANTOPRAZOL [Concomitant]
     Indication: ABDOMINAL PAIN UPPER
     Route: 048
     Dates: start: 20030101

REACTIONS (6)
  - MENSTRUATION IRREGULAR [None]
  - DEPRESSED MOOD [None]
  - PAIN [None]
  - MENORRHAGIA [None]
  - FEMALE GENITAL OPERATION [None]
  - SLEEP DISORDER [None]
